FAERS Safety Report 21651382 (Version 2)
Quarter: 2025Q3

REPORT INFORMATION
  Report Type: Report from Study
  Country: EU (occurrence: EU)
  Receive Date: 20221128
  Receipt Date: 20250905
  Transmission Date: 20251020
  Serious: Yes (Hospitalization)
  Sender: MYLAN
  Company Number: EU-002147023-NVSC2020DE294585

PATIENT
  Age: 57 Year
  Sex: Male
  Weight: 83.5 kg

DRUGS (12)
  1. ATORVASTATIN [Suspect]
     Active Substance: ATORVASTATIN
     Indication: Dyslipidaemia
     Dates: start: 20200617, end: 20201031
  2. ATORVASTATIN [Suspect]
     Active Substance: ATORVASTATIN
     Indication: Hyperlipidaemia
     Route: 065
     Dates: start: 20200617, end: 20201031
  3. ATORVASTATIN [Suspect]
     Active Substance: ATORVASTATIN
     Route: 065
     Dates: start: 20200617, end: 20201031
  4. ATORVASTATIN [Suspect]
     Active Substance: ATORVASTATIN
     Dates: start: 20200617, end: 20201031
  5. EZETIMIBE [Suspect]
     Active Substance: EZETIMIBE
     Indication: Dyslipidaemia
     Dates: start: 20200617, end: 20201031
  6. EZETIMIBE [Suspect]
     Active Substance: EZETIMIBE
     Indication: Hyperlipidaemia
     Route: 065
     Dates: start: 20200617, end: 20201031
  7. EZETIMIBE [Suspect]
     Active Substance: EZETIMIBE
     Route: 065
     Dates: start: 20200617, end: 20201031
  8. EZETIMIBE [Suspect]
     Active Substance: EZETIMIBE
     Dates: start: 20200617, end: 20201031
  9. ASPIRIN [Suspect]
     Active Substance: ASPIRIN
     Indication: Cardiovascular disorder
     Dates: start: 20150414, end: 20201031
  10. ASPIRIN [Suspect]
     Active Substance: ASPIRIN
     Route: 065
     Dates: start: 20150414, end: 20201031
  11. ASPIRIN [Suspect]
     Active Substance: ASPIRIN
     Route: 065
     Dates: start: 20150414, end: 20201031
  12. ASPIRIN [Suspect]
     Active Substance: ASPIRIN
     Dates: start: 20150414, end: 20201031

REACTIONS (2)
  - Transaminases increased [Recovering/Resolving]
  - Hepatitis E [Recovered/Resolved]

NARRATIVE: CASE EVENT DATE: 20201030
